FAERS Safety Report 6719157-2 (Version None)
Quarter: 2010Q2

REPORT INFORMATION
  Report Type: 
  Country: None (occurrence: None)
  Receive Date: 20100511
  Receipt Date: 20100511
  Transmission Date: 20101027
  Serious: Yes (Life-Threatening, Hospitalization, Disabling, Other)
  Sender: FDA-Public Use
  Company Number: None

PATIENT
  Age: 10 Month
  Sex: Male
  Weight: 11.3399 kg

DRUGS (2)
  1. TYLENOL INFANT DROPS MCNEIL PPC [Suspect]
     Indication: TEETHING
     Dates: start: 20100409, end: 20100423
  2. CHILDREN'S MOTRIN [Suspect]
     Indication: EAR INFECTION
     Dates: start: 20100409, end: 20100423

REACTIONS (4)
  - DISCOMFORT [None]
  - HAEMATOCHEZIA [None]
  - IRRITABILITY [None]
  - LIVER FUNCTION TEST ABNORMAL [None]
